FAERS Safety Report 16694186 (Version 1)
Quarter: 2019Q3

REPORT INFORMATION
  Report Type: Spontaneous
  Country: US (occurrence: US)
  Receive Date: 20190812
  Receipt Date: 20190812
  Transmission Date: 20191004
  Serious: No
  Sender: FDA-Public Use
  Company Number: US-SA-2019SA215381

PATIENT

DRUGS (2)
  1. FROZEN [Concomitant]
     Route: 065
  2. ENOXAPARIN SODIUM. [Suspect]
     Active Substance: ENOXAPARIN SODIUM
     Dosage: 8 MG, BID
     Route: 065

REACTIONS (1)
  - Product dose omission [Unknown]
